FAERS Safety Report 6493693-9 (Version None)
Quarter: 2009Q4

REPORT INFORMATION
  Report Type: 
  Country: None (occurrence: None)
  Receive Date: 20091214
  Receipt Date: 20091201
  Transmission Date: 20100525
  Serious: Yes (Hospitalization, Other)
  Sender: FDA-Public Use
  Company Number: B0614625A

PATIENT
  Age: 72 Year
  Sex: Male

DRUGS (12)
  1. DIGOXIN [Suspect]
     Dosage: 62.5UG PER DAY
     Route: 065
  2. AMIODARONE HCL [Concomitant]
  3. LANSOPRAZOLE [Concomitant]
  4. FUROSEMIDE [Concomitant]
  5. SIMVASTATIN [Concomitant]
  6. LEVOTHYROXINE SODIUM [Concomitant]
  7. GLIMEPIRIDE [Concomitant]
  8. EZETIMIBE [Concomitant]
  9. DOXAZOSIN [Concomitant]
  10. CLOPIDOGREL [Concomitant]
  11. NIFEDIPINE [Concomitant]
  12. ALFACALCIDOL [Concomitant]

REACTIONS (3)
  - CARDIOACTIVE DRUG LEVEL INCREASED [None]
  - GENERAL PHYSICAL HEALTH DETERIORATION [None]
  - RENAL IMPAIRMENT [None]
